FAERS Safety Report 19097224 (Version 1)
Quarter: 2021Q2

REPORT INFORMATION
  Report Type: Spontaneous
  Country: FR (occurrence: FR)
  Receive Date: 20210406
  Receipt Date: 20210406
  Transmission Date: 20210717
  Serious: Yes (Other)
  Sender: FDA-Public Use
  Company Number: FR-ACCORD-221837

PATIENT
  Age: 60 Year

DRUGS (4)
  1. MELPHALAN. [Suspect]
     Active Substance: MELPHALAN
     Indication: B-CELL LYMPHOMA
     Dosage: 140 MG/M2 ON DAY 2
     Route: 065
  2. BENDAMUSTINE/BENDAMUSTINE HYDROCHLORIDE [Suspect]
     Active Substance: BENDAMUSTINE HYDROCHLORIDE
     Indication: BONE MARROW CONDITIONING REGIMEN
     Dosage: 200 MG/M2 FROM DAY 8 TO 7
     Route: 065
  3. CYTARABINE/CYTARABINE HYDROCHLORIDE/CYTARABINE OCFOSFATE [Suspect]
     Active Substance: CYTARABINE
     Indication: BONE MARROW CONDITIONING REGIMEN
     Dosage: 200 MG/M2, Q12H FROM DAY 6 TO DAY 3
     Route: 065
  4. ETOPOSIDE. [Suspect]
     Active Substance: ETOPOSIDE
     Indication: BONE MARROW CONDITIONING REGIMEN
     Dosage: 100 MG/M2 FROM DAY 6 TO DAY 3
     Route: 065

REACTIONS (5)
  - Off label use [Unknown]
  - Human herpesvirus 6 infection reactivation [Recovered/Resolved]
  - Mycobacterial infection [Recovered/Resolved with Sequelae]
  - Enteritis [Recovered/Resolved]
  - Colitis [Recovered/Resolved]
